FAERS Safety Report 8838700 (Version 1)
Quarter: 2012Q4

REPORT INFORMATION
  Report Type: 
  Country: CA (occurrence: CA)
  Receive Date: 20121012
  Receipt Date: 20121012
  Transmission Date: 20130627
  Serious: Yes (Other)
  Sender: FDA-Public Use
  Company Number: CA-TEVA-363805USA

PATIENT
  Sex: Female

DRUGS (2)
  1. METHOTREXATE [Suspect]
     Route: 065
  2. ADALIMUMAB [Suspect]
     Indication: SYSTEMIC SCLEROSIS
     Route: 065

REACTIONS (1)
  - Breast cancer [Unknown]
